FAERS Safety Report 16797545 (Version 1)
Quarter: 2019Q3

REPORT INFORMATION
  Report Type: Report from Study
  Country: US (occurrence: US)
  Receive Date: 20190912
  Receipt Date: 20190912
  Transmission Date: 20191005
  Serious: Yes (Other)
  Sender: FDA-Public Use
  Company Number: US-ROCHE-2386385

PATIENT
  Sex: Female

DRUGS (1)
  1. OCREVUS [Suspect]
     Active Substance: OCRELIZUMAB
     Indication: RELAPSING-REMITTING MULTIPLE SCLEROSIS
     Dosage: 01/AUG/2017, 01/FEB/2018, 14/AUG/2018, 14/FEB/2019
     Route: 065
     Dates: start: 20170801, end: 20190814

REACTIONS (1)
  - Hepatitis B virus test positive [Unknown]

NARRATIVE: CASE EVENT DATE: 2019
